FAERS Safety Report 16399574 (Version 1)
Quarter: 2019Q2

REPORT INFORMATION
  Report Type: Spontaneous
  Country: US (occurrence: US)
  Receive Date: 20190606
  Receipt Date: 20190606
  Transmission Date: 20190711
  Serious: No
  Sender: FDA-Public Use
  Company Number: US-SA-2019SA148297

PATIENT
  Age: 83 Year
  Sex: Female

DRUGS (1)
  1. LANTUS SOLOSTAR [Suspect]
     Active Substance: INSULIN GLARGINE
     Indication: TYPE 2 DIABETES MELLITUS
     Dosage: 65 U, QD
     Route: 065

REACTIONS (4)
  - Knee arthroplasty [Unknown]
  - Lower limb fracture [Unknown]
  - Hypovitaminosis [Unknown]
  - Feeling abnormal [Unknown]
